FAERS Safety Report 21543985 (Version 2)
Quarter: 2023Q1

REPORT INFORMATION
  Report Type: Spontaneous
  Country: DE (occurrence: DE)
  Receive Date: 20221102
  Receipt Date: 20230109
  Transmission Date: 20230418
  Serious: No
  Sender: FDA-Public Use
  Company Number: DE-GILEAD-2022-0601152

PATIENT
  Age: 30 Year
  Sex: Male
  Weight: 70 kg

DRUGS (12)
  1. GENVOYA [Suspect]
     Active Substance: COBICISTAT\ELVITEGRAVIR\EMTRICITABINE\TENOFOVIR ALAFENAMIDE FUMARATE
     Indication: HIV infection
     Route: 050
  2. MIDAZOLAM [Suspect]
     Active Substance: MIDAZOLAM
     Indication: Product used for unknown indication
     Route: 065
  3. MEROPENEM [Concomitant]
     Active Substance: MEROPENEM
  4. MOXIFLOXACIN [Concomitant]
     Active Substance: MOXIFLOXACIN
  5. SULFAMETHOXAZOLE\TRIMETHOPRIM [Concomitant]
     Active Substance: SULFAMETHOXAZOLE\TRIMETHOPRIM
  6. GANCICLOVIR [Concomitant]
     Active Substance: GANCICLOVIR
  7. SUFENTANIL [Concomitant]
     Active Substance: SUFENTANIL
  8. KETAMINE [Concomitant]
     Active Substance: KETAMINE
  9. VASOPRESSIN [Concomitant]
     Active Substance: VASOPRESSIN
  10. NOREPINEPHRINE [Concomitant]
     Active Substance: NOREPINEPHRINE
  11. UNSPECIFIED INGREDIENT [Concomitant]
     Active Substance: UNSPECIFIED INGREDIENT
  12. SODIUM BICARBONATE [Concomitant]
     Active Substance: SODIUM BICARBONATE

REACTIONS (2)
  - Drug interaction [Unknown]
  - Off label use [Not Recovered/Not Resolved]
